FAERS Safety Report 23278274 (Version 3)
Quarter: 2024Q1

REPORT INFORMATION
  Report Type: Spontaneous
  Country: FR (occurrence: FR)
  Receive Date: 20231208
  Receipt Date: 20240102
  Transmission Date: 20240410
  Serious: Yes (Other)
  Sender: FDA-Public Use
  Company Number: None

PATIENT
  Age: 26 Year
  Sex: Female
  Weight: 76 kg

DRUGS (5)
  1. PREGABALIN [Suspect]
     Active Substance: PREGABALIN
     Indication: Product used for unknown indication
     Dosage: 2200 MILLIGRAM,(2200 MG, START DATE AND STOP DATE: 10-AUG-2023)
     Route: 065
     Dates: start: 20230810, end: 20230810
  2. DAFALGAN CODEINE [Suspect]
     Active Substance: ACETAMINOPHEN\CODEINE PHOSPHATE
     Indication: Product used for unknown indication
     Dosage: 16 DOSAGE FORM,(16 TABS OF DAFALGAN CODEINE 500 MG/30 MG)
     Route: 048
     Dates: start: 20230810, end: 20230810
  3. ZOPICLONE [Concomitant]
     Active Substance: ZOPICLONE
     Indication: Product used for unknown indication
     Dosage: 15 MILLIGRAM,QD,(2 TABS OF ZOPICLONE 7.5 MG/DAY)
     Route: 065
  4. VALIUM [Concomitant]
     Active Substance: DIAZEPAM
     Indication: Product used for unknown indication
     Dosage: 30 MILLIGRAM,QD,(SCORED TABLET,3 TABS OF VALIUM 10 MG/DAY)
     Route: 065
  5. QUETIAPINE [Concomitant]
     Active Substance: QUETIAPINE
     Indication: Product used for unknown indication
     Dosage: 100 MILLIGRAM,QD,(1 TAB OF QUETIAPINE 100 MG EVERY EVENING)
     Route: 065

REACTIONS (3)
  - Drug use disorder [Recovered/Resolved]
  - Drug dependence [Recovering/Resolving]
  - Drug abuse [Unknown]

NARRATIVE: CASE EVENT DATE: 20230810
